FAERS Safety Report 9312549 (Version 1)
Quarter: 2013Q2

REPORT INFORMATION
  Report Type: Spontaneous
  Country: CA (occurrence: CA)
  Receive Date: 20130528
  Receipt Date: 20130528
  Transmission Date: 20140414
  Serious: Yes (Other)
  Sender: FDA-Public Use
  Company Number: CA-JNJFOC-20130517677

PATIENT
  Age: 62 Year
  Sex: Male
  Weight: 72 kg

DRUGS (6)
  1. NUCYNTA CR [Suspect]
     Indication: PRODUCT USED FOR UNKNOWN INDICATION
     Dosage: ONCE EVERY DAY
     Route: 048
  2. METFORMIN [Concomitant]
     Route: 065
  3. LYRICA [Concomitant]
     Route: 065
  4. LISINOPRIL [Concomitant]
     Route: 065
  5. LIPITOR [Concomitant]
     Route: 065
  6. ASA [Concomitant]
     Route: 065

REACTIONS (1)
  - Muscle twitching [Recovered/Resolved]
